FAERS Safety Report 10576588 (Version 1)
Quarter: 2014Q4

REPORT INFORMATION
  Report Type: Other
  Country: GB (occurrence: GB)
  Receive Date: 20141111
  Receipt Date: 20141111
  Transmission Date: 20150529
  Serious: Yes (Life-Threatening, Other)
  Sender: FDA-Public Use
  Company Number: GB-TAKEDA-2014TEU009764

PATIENT
  Age: 80 Year
  Sex: Female
  Weight: 71.1 kg

DRUGS (13)
  1. ASPIRIN. [Concomitant]
     Active Substance: ASPIRIN
     Dosage: 75 MG, QD
  2. TOLTERODINE [Concomitant]
     Active Substance: TOLTERODINE
     Dosage: UNK
  3. CENTRUM                            /00554501/ [Concomitant]
     Active Substance: VITAMINS
     Dosage: ADVANCE 50+
  4. PEPPERMINT OIL [Concomitant]
     Active Substance: PEPPERMINT OIL
  5. SERTRALINE [Concomitant]
     Active Substance: SERTRALINE HYDROCHLORIDE
     Dosage: 50 MG, UNK
  6. RAMIPRIL. [Concomitant]
     Active Substance: RAMIPRIL
     Dosage: 5 MG, QD
  7. SENNA [Concomitant]
     Active Substance: SENNA LEAF\SENNOSIDES\SENNOSIDES A AND B
     Dosage: UNK
  8. ACTOS [Suspect]
     Active Substance: PIOGLITAZONE HYDROCHLORIDE
     Indication: DIABETES MELLITUS MANAGEMENT
     Dosage: 45 MG, UNK
     Route: 048
     Dates: start: 20130107, end: 20131011
  9. MACROGOL [Concomitant]
     Active Substance: POLYETHYLENE GLYCOLS
  10. SALBUTAMOL [Concomitant]
     Active Substance: ALBUTEROL
     Dosage: UNK
     Route: 055
  11. FLUTIFORM [Concomitant]
     Active Substance: FLUTICASONE PROPIONATE\FORMOTEROL FUMARATE
  12. METFORMIN [Concomitant]
     Active Substance: METFORMIN HYDROCHLORIDE
     Dosage: 500 MG, TID
  13. GLIMEPIRIDE. [Concomitant]
     Active Substance: GLIMEPIRIDE
     Dosage: 3 MG, UNK

REACTIONS (1)
  - Bladder adenocarcinoma stage unspecified [Recovered/Resolved with Sequelae]

NARRATIVE: CASE EVENT DATE: 20130907
